FAERS Safety Report 8602062-4 (Version None)
Quarter: 2012Q3

REPORT INFORMATION
  Report Type: 
  Country: None (occurrence: None)
  Receive Date: 20120805
  Receipt Date: 20120723
  Transmission Date: 20120928
  Serious: Yes (Other)
  Sender: FDA-Public Use
  Company Number: 2012P1051143

PATIENT
  Age: 59 Year
  Sex: Female

DRUGS (5)
  1. AZITHROMYCIN [Concomitant]
  2. PARNATE [Suspect]
     Indication: DEPRESSION
     Dosage: 25 MG; BID; PO
     Route: 048
     Dates: start: 20020101
  3. URSODIOL [Concomitant]
  4. ATOVAQUONE [Suspect]
     Indication: LYME DISEASE
     Dosage: 750 MG; BID; PO
     Route: 048
     Dates: start: 20120501
  5. CEFTRIAXONE [Concomitant]

REACTIONS (2)
  - DRUG INTERACTION [None]
  - BLOOD PRESSURE INCREASED [None]
